FAERS Safety Report 10541865 (Version 1)
Quarter: 2014Q4

REPORT INFORMATION
  Report Type: Spontaneous
  Country: US (occurrence: None)
  Receive Date: 20141010
  Receipt Date: 20141010
  Transmission Date: 20150529
  Serious: No
  Sender: FDA-Public Use
  Company Number: 163-POMAL-14063739

PATIENT
  Age: 73 Year
  Sex: Male
  Weight: 81.65 kg

DRUGS (9)
  1. ACYCLOVIR. [Concomitant]
     Active Substance: ACYCLOVIR
  2. TAMSULOSIN HCL (TAMSULOSIN HYDROCHLORIDE) [Concomitant]
  3. TORSEMIDE(TORASEMIDE) [Concomitant]
  4. GLYBURIDE(GLIBENCLAMIDE) [Concomitant]
  5. WARAFARIN SODIUM(WARFARIN SODIUM) [Concomitant]
  6. CYMBALTA(DULOXETINE HYDROCHLORIDE) [Concomitant]
  7. POMALYST [Suspect]
     Active Substance: POMALIDOMIDE
     Indication: PLASMA CELL MYELOMA
     Route: 048
     Dates: start: 20140116
  8. SPIRONOLACTONE. [Concomitant]
     Active Substance: SPIRONOLACTONE
  9. DEXAMETHASONE. [Concomitant]
     Active Substance: DEXAMETHASONE

REACTIONS (1)
  - Body height decreased [None]

NARRATIVE: CASE EVENT DATE: 2014
